FAERS Safety Report 23574282 (Version 1)
Quarter: 2024Q1

REPORT INFORMATION
  Report Type: Spontaneous
  Country: TR (occurrence: TR)
  Receive Date: 20240228
  Receipt Date: 20240228
  Transmission Date: 20240409
  Serious: Yes (Other)
  Sender: FDA-Public Use
  Company Number: TR-ASTELLAS-2024US005980

PATIENT
  Age: 64 Year
  Sex: Male

DRUGS (6)
  1. XTANDI [Suspect]
     Active Substance: ENZALUTAMIDE
     Indication: Hormone-refractory prostate cancer
     Route: 048
     Dates: start: 202008
  2. ZOLEDRONIC ACID [Suspect]
     Active Substance: ZOLEDRONIC ACID
     Indication: Hormone-refractory prostate cancer
     Dosage: 4 MG, EVERY 28 DAYS
     Route: 065
     Dates: start: 202008
  3. ABIRATERONE [Suspect]
     Active Substance: ABIRATERONE
     Indication: Product used for unknown indication
     Route: 048
  4. CABAZITAXEL [Suspect]
     Active Substance: CABAZITAXEL
     Indication: Product used for unknown indication
     Dosage: UNK UNK, UNKNOWN FREQ.
     Route: 065
  5. LUTETIUM LU-177 [Suspect]
     Active Substance: LUTETIUM LU-177
     Indication: Product used for unknown indication
     Dosage: 150 MCI, UNKNOWN FREQ. (FIRST CURE)
     Route: 065
  6. LUTETIUM LU-177 [Suspect]
     Active Substance: LUTETIUM LU-177
     Dosage: 200 MCI, UNKNOWN FREQ. (SECOND CURE)
     Route: 065
     Dates: start: 202207

REACTIONS (2)
  - Malignant neoplasm progression [Unknown]
  - Prostatic specific antigen increased [Unknown]

NARRATIVE: CASE EVENT DATE: 20220201
